FAERS Safety Report 8850070 (Version 2)
Quarter: 2012Q4

REPORT INFORMATION
  Report Type: 
  Country: US (occurrence: US)
  Receive Date: 20121019
  Receipt Date: 20121116
  Transmission Date: 20130627
  Serious: Yes (Death, Other)
  Sender: FDA-Public Use
  Company Number: US-PFIZER INC-2012256526

PATIENT
  Age: 64 Year
  Sex: Male

DRUGS (8)
  1. REVATIO [Suspect]
     Indication: IDIOPATHIC PULMONARY ARTERIAL HYPERTENSION
     Dosage: 20 mg, UNK
     Route: 048
  2. COUMADIN [Concomitant]
     Dosage: UNK
  3. DIGOXIN [Concomitant]
     Dosage: UNK
  4. MIDODRINE [Concomitant]
     Dosage: UNK
  5. FLOLAN [Concomitant]
     Indication: PULMONARY HYPERTENSION
     Dosage: UNK
  6. NEURONTIN [Concomitant]
     Dosage: UNK
  7. PRILOSEC [Concomitant]
     Dosage: UNK
  8. EPOPROSTENOL [Concomitant]

REACTIONS (1)
  - Gastrointestinal haemorrhage [Fatal]
